FAERS Safety Report 4282002-1 (Version None)
Quarter: 2004Q1

REPORT INFORMATION
  Report Type: 
  Country: None (occurrence: None)
  Receive Date: 20040128
  Receipt Date: 20040116
  Transmission Date: 20041129
  Serious: Yes (Life-Threatening)
  Sender: FDA-Public Use
  Company Number: 204238

PATIENT
  Age: 70 Year
  Sex: Female
  Weight: 71.7 kg

DRUGS (14)
  1. RITUXAN [Suspect]
     Indication: NON-HODGKIN'S LYMPHOMA
     Dosage: 375 MG/M2, SINGLE, INTRAVENOUS
     Route: 042
     Dates: start: 20030227, end: 20030227
  2. ASPIRIN [Concomitant]
  3. PREMARIN [Concomitant]
  4. LIPITOR [Concomitant]
  5. SPIRONOLACTONE [Concomitant]
  6. ADALAT [Concomitant]
  7. ISOSORBIDE (ISOSORBIDE NOS) [Concomitant]
  8. MONOPRIL [Concomitant]
  9. NIASPAN [Concomitant]
  10. GLUCOSAMINE (GLUCOSAMINE) [Concomitant]
  11. CALCIUM (CALCIUM NOS) [Concomitant]
  12. VITAMIN D (CHOLECALCIFEROL) [Concomitant]
  13. TYLENOL [Concomitant]
  14. BENADRYL [Concomitant]

REACTIONS (4)
  - ANAPHYLACTIC REACTION [None]
  - CHEST PAIN [None]
  - HEART RATE DECREASED [None]
  - OXYGEN SATURATION DECREASED [None]
